FAERS Safety Report 9749669 (Version 1)
Quarter: 2013Q4

REPORT INFORMATION
  Report Type: Spontaneous
  Country: US (occurrence: US)
  Receive Date: 20131212
  Receipt Date: 20131212
  Transmission Date: 20140711
  Serious: No
  Sender: FDA-Public Use
  Company Number: US-BAXTER-2013BAX049834

PATIENT
  Age: 52 Year
  Sex: 0

DRUGS (1)
  1. OSMITROL INJECTION (MANNITOL INJECTION, USP) [Suspect]
     Indication: ANGLE CLOSURE GLAUCOMA
     Dosage: 3.1 GM/KG
     Route: 042

REACTIONS (2)
  - Headache [Unknown]
  - Nausea [Unknown]
